FAERS Safety Report 4641586-1 (Version None)
Quarter: 2005Q2

REPORT INFORMATION
  Report Type: 
  Country: None (occurrence: None)
  Receive Date: 20050420
  Receipt Date: 20050404
  Transmission Date: 20051028
  Serious: Yes (Life-Threatening)
  Sender: FDA-Public Use
  Company Number: EWC050443386

PATIENT
  Age: 71 Year
  Sex: Female

DRUGS (4)
  1. GEMCITABINE HYDROCHLORIDE-IV (GEMCITABINE) [Suspect]
     Indication: BLADDER NEOPLASM
     Dosage: 800 MG WEEK
     Dates: start: 20040714
  2. GLURENOR (GLIQUIDONE) [Concomitant]
  3. FUROSEMIDE [Concomitant]
  4. MINITRAN (GLYCERYL TRINITRATE) [Concomitant]

REACTIONS (2)
  - HYPERKALAEMIA [None]
  - RENAL FAILURE ACUTE [None]
